FAERS Safety Report 7361542-2 (Version None)
Quarter: 2011Q1

REPORT INFORMATION
  Report Type: 
  Country: None (occurrence: None)
  Receive Date: 20110318
  Receipt Date: 20110316
  Transmission Date: 20110831
  Serious: Yes (Other)
  Sender: FDA-Public Use
  Company Number: US-PFIZER INC-2011058600

PATIENT
  Sex: Male

DRUGS (1)
  1. CHANTIX [Suspect]
     Dosage: UNK
     Route: 048
     Dates: end: 20110101

REACTIONS (7)
  - DEPRESSION [None]
  - AGITATION [None]
  - PARANOIA [None]
  - PERSONALITY CHANGE [None]
  - ABNORMAL BEHAVIOUR [None]
  - FEAR [None]
  - PANIC REACTION [None]
